FAERS Safety Report 20448547 (Version 2)
Quarter: 2022Q1

REPORT INFORMATION
  Report Type: Report from Study
  Country: CH (occurrence: CH)
  Receive Date: 20220209
  Receipt Date: 20220214
  Transmission Date: 20220423
  Serious: Yes (Other)
  Sender: FDA-Public Use
  Company Number: CH-ABBVIE-22K-151-4270061-00

PATIENT
  Age: 79 Year
  Sex: Female

DRUGS (3)
  1. CARBIDOPA\LEVODOPA [Suspect]
     Active Substance: CARBIDOPA\LEVODOPA
     Indication: Parkinson^s disease
     Route: 050
     Dates: start: 20200210
  2. CARBIDOPA\LEVODOPA [Suspect]
     Active Substance: CARBIDOPA\LEVODOPA
     Dosage: MD: 3.5 ML, CRD: 1.8 ML/H, CRN: 0 ML/H, ED: 0.8 ML
     Route: 050
     Dates: start: 20211213, end: 20220207
  3. CARBIDOPA\LEVODOPA [Suspect]
     Active Substance: CARBIDOPA\LEVODOPA
     Dosage: MD: 3.5 ML, CRD: 1.7 ML/H, CRN: 0 ML/H, ED: 0.8 ML
     Route: 050
     Dates: start: 20220207

REACTIONS (5)
  - Skin laceration [Recovered/Resolved]
  - Restlessness [Unknown]
  - Fall [Recovered/Resolved]
  - Hyperkinesia [Unknown]
  - Freezing phenomenon [Unknown]

NARRATIVE: CASE EVENT DATE: 20220101
